FAERS Safety Report 5119215-2 (Version None)
Quarter: 2006Q4

REPORT INFORMATION
  Report Type: 
  Country: None (occurrence: None)
  Receive Date: 20061003
  Receipt Date: 20060922
  Transmission Date: 20070319
  Serious: Yes (Death, Hospitalization)
  Sender: FDA-Public Use
  Company Number: US-JNJFOC-20060905775

PATIENT
  Sex: Male
  Weight: 91.17 kg

DRUGS (9)
  1. LEVAQUIN [Suspect]
     Indication: SINUSITIS
     Route: 048
     Dates: start: 20060420, end: 20060420
  2. LANTIS [Concomitant]
     Indication: DIABETES MELLITUS
     Route: 065
  3. ACTOS [Concomitant]
     Indication: DIABETES MELLITUS
     Route: 065
  4. TRICLOR [Concomitant]
     Indication: HYPERCHOLESTEROLAEMIA
     Route: 065
  5. LIPITOR [Concomitant]
     Indication: HYPERCHOLESTEROLAEMIA
     Route: 065
  6. GLUCOTRAL [Concomitant]
     Indication: DIABETES MELLITUS
     Route: 065
  7. METFORMIN HCL [Concomitant]
     Indication: DIABETES MELLITUS
     Route: 065
  8. LISINOPRIL [Concomitant]
     Indication: BLOOD PRESSURE
     Route: 065
  9. AUGMENTIN [Concomitant]
     Indication: SINUSITIS
     Route: 065
     Dates: start: 20060407, end: 20060417

REACTIONS (2)
  - ANAPHYLACTIC REACTION [None]
  - ANOXIC ENCEPHALOPATHY [None]
